FAERS Safety Report 4557770-1 (Version None)
Quarter: 2005Q1

REPORT INFORMATION
  Report Type: 
  Country: None (occurrence: None)
  Receive Date: 20050103
  Receipt Date: 20041007
  Transmission Date: 20050727
  Serious: Yes (Other)
  Sender: FDA-Public Use
  Company Number: 2004UW15687

PATIENT
  Age: 63 Year
  Sex: Female
  Weight: 63.05 kg

DRUGS (10)
  1. CRESTOR [Suspect]
     Indication: BLOOD CHOLESTEROL INCREASED
     Dosage: 10 MG PO
     Route: 048
     Dates: start: 20031205, end: 20040514
  2. METHYLPHENIDATE [Concomitant]
  3. THYROID TAB [Concomitant]
  4. GLUCOSAMINE AND CHONDROITIN [Concomitant]
  5. DAILY VITAMINS [Concomitant]
  6. EVISTA [Concomitant]
  7. CALCIUM GLUCONATE [Concomitant]
  8. FOSAMAX [Concomitant]
  9. LEVOXYL [Concomitant]
  10. LISINOPRIL [Concomitant]

REACTIONS (3)
  - CONSTIPATION [None]
  - KIDNEY INFECTION [None]
  - MYALGIA [None]
